FAERS Safety Report 7342719-9 (Version None)
Quarter: 2011Q1

REPORT INFORMATION
  Report Type: 
  Country: None (occurrence: None)
  Receive Date: 20110301
  Receipt Date: 20110216
  Transmission Date: 20110831
  Serious: Yes (Other)
  Sender: FDA-Public Use
  Company Number: 2011MA001574

PATIENT
  Age: 84 Year
  Sex: Female

DRUGS (7)
  1. DIAZEPAM [Concomitant]
  2. GASTROCOTE [Concomitant]
  3. PARACETAMAL [Concomitant]
  4. PREGABALIN [Concomitant]
  5. TRAMADOL HYDROCHLORIDE [Suspect]
     Indication: ARTHRITIS
     Dosage: 50 MG;
  6. TRAMADOL HYDROCHLORIDE [Suspect]
     Indication: ABDOMINAL PAIN
     Dosage: 50 MG;
  7. LANSOPRAZOLE [Concomitant]

REACTIONS (5)
  - DYSPEPSIA [None]
  - ORAL DISCOMFORT [None]
  - THROAT IRRITATION [None]
  - ANXIETY [None]
  - DRY MOUTH [None]
